FAERS Safety Report 19082205 (Version 8)
Quarter: 2022Q2

REPORT INFORMATION
  Report Type: Spontaneous
  Country: US (occurrence: US)
  Receive Date: 20210401
  Receipt Date: 20220616
  Transmission Date: 20220721
  Serious: Yes (Hospitalization)
  Sender: FDA-Public Use
  Company Number: US-SA-SAC20210324000333

PATIENT
  Age: 64 Year
  Sex: Male

DRUGS (13)
  1. ELOXATIN [Suspect]
     Active Substance: OXALIPLATIN
     Indication: Oesophageal adenocarcinoma
     Dosage: 255 MG/M2, BID
     Route: 042
     Dates: start: 20210107, end: 20210211
  2. ELOXATIN [Suspect]
     Active Substance: OXALIPLATIN
     Dosage: 255 MG/M2, BID
     Route: 042
     Dates: start: 20210211
  3. ELOXATIN [Suspect]
     Active Substance: OXALIPLATIN
     Dosage: 195 MG, Q3W
     Route: 042
     Dates: start: 20210304
  4. CAPECITABINE [Suspect]
     Active Substance: CAPECITABINE
     Indication: Oesophageal adenocarcinoma
     Dosage: 4000 MG/M2, BID
     Route: 048
     Dates: start: 20210107
  5. CAPECITABINE [Suspect]
     Active Substance: CAPECITABINE
     Dosage: 4000 MG/M2, BID
     Route: 048
     Dates: start: 20210211
  6. CAPECITABINE [Suspect]
     Active Substance: CAPECITABINE
     Dosage: 3000 MG, Q3W
     Route: 048
     Dates: start: 20210304
  7. TISLELIZUMAB [Suspect]
     Active Substance: TISLELIZUMAB
     Indication: Oesophageal adenocarcinoma
     Dosage: 200 MG, QD
     Dates: start: 20210107
  8. TISLELIZUMAB [Suspect]
     Active Substance: TISLELIZUMAB
     Dosage: 200 UNK
     Dates: start: 20210211
  9. DKN-01 [Suspect]
     Active Substance: DKN-01
     Indication: Oesophageal adenocarcinoma
     Dosage: 300 MG
     Dates: start: 20210107
  10. IMODIUM [Concomitant]
     Active Substance: LOPERAMIDE HYDROCHLORIDE
     Dosage: 2 1/2 DOSES AND 2 DOSES
  11. IMODIUM [Concomitant]
     Active Substance: LOPERAMIDE HYDROCHLORIDE
     Dosage: FINAL DOSE
     Dates: start: 20210213
  12. LOPERAMIDE [Concomitant]
     Active Substance: LOPERAMIDE
     Indication: Diarrhoea
     Dosage: 2DOSE
  13. TISLELIZUMAB [Concomitant]
     Active Substance: TISLELIZUMAB

REACTIONS (6)
  - Chills [Not Recovered/Not Resolved]
  - Diarrhoea [Recovered/Resolved]
  - Abdominal pain [Not Recovered/Not Resolved]
  - Diarrhoea [Not Recovered/Not Resolved]
  - Vomiting [Not Recovered/Not Resolved]
  - Nausea [Not Recovered/Not Resolved]

NARRATIVE: CASE EVENT DATE: 20210212
